FAERS Safety Report 5749537-3 (Version None)
Quarter: 2008Q2

REPORT INFORMATION
  Report Type: 
  Country: None (occurrence: None)
  Receive Date: 20080527
  Receipt Date: 20080526
  Transmission Date: 20081010
  Serious: Yes (Other)
  Sender: FDA-Public Use
  Company Number: D0057428A

PATIENT
  Age: 44 Year
  Sex: Female

DRUGS (1)
  1. CEFUHEXAL [Suspect]
     Indication: BRONCHITIS
     Dosage: 500MG UNKNOWN
     Route: 048

REACTIONS (2)
  - ANAPHYLACTIC REACTION [None]
  - ASTHMA [None]
